FAERS Safety Report 13167312 (Version 1)
Quarter: 2017Q1

REPORT INFORMATION
  Report Type: Spontaneous
  Country: US (occurrence: US)
  Receive Date: 20170131
  Receipt Date: 20170131
  Transmission Date: 20170509
  Serious: No
  Sender: FDA-Public Use
  Company Number: None

PATIENT
  Age: 71 Year
  Sex: Female
  Weight: 72.64 kg

DRUGS (6)
  1. OXYCODONE/ACETAMINPHEN [Concomitant]
  2. NUCYNTA ER [Suspect]
     Active Substance: TAPENTADOL HYDROCHLORIDE
     Indication: PAIN
     Route: 048
     Dates: start: 20170113, end: 20170115
  3. ZOCOR [Concomitant]
     Active Substance: SIMVASTATIN
  4. CELEXIA [Concomitant]
  5. WARFARIN [Concomitant]
     Active Substance: WARFARIN
  6. TRAZODONE HYDROCHLORIDE. [Concomitant]
     Active Substance: TRAZODONE HYDROCHLORIDE

REACTIONS (1)
  - Diarrhoea [None]

NARRATIVE: CASE EVENT DATE: 20170113
